FAERS Safety Report 8988949 (Version 1)
Quarter: 2012Q4

REPORT INFORMATION
  Report Type: 
  Country: US (occurrence: US)
  Receive Date: 20121227
  Receipt Date: 20121227
  Transmission Date: 20130627
  Serious: Yes (Hospitalization, Other)
  Sender: FDA-Public Use
  Company Number: US-ELI_LILLY_AND_COMPANY-US201201007932

PATIENT
  Age: 36 Year
  Sex: Female

DRUGS (1)
  1. BYETTA [Suspect]
     Dosage: UNK

REACTIONS (2)
  - Pancreatitis acute [Unknown]
  - Hypertriglyceridaemia [Recovering/Resolving]
